FAERS Safety Report 5898905-8 (Version None)
Quarter: 2008Q3

REPORT INFORMATION
  Report Type: 
  Country: None (occurrence: None)
  Receive Date: 20080925
  Receipt Date: 20080904
  Transmission Date: 20090109
  Serious: Yes (Other)
  Sender: FDA-Public Use
  Company Number: HQWYE322921JUN06

PATIENT
  Age: 40 Year
  Sex: Male
  Weight: 76 kg

DRUGS (2)
  1. CYCLOSPORINE [Suspect]
     Dosage: NOT PROVIDED
     Dates: start: 20060613, end: 20060614
  2. MYCOPHENOLATE MOFETIL [Concomitant]

REACTIONS (2)
  - ARTERIAL THROMBOSIS [None]
  - COMPLICATIONS OF TRANSPLANTED KIDNEY [None]
